FAERS Safety Report 4417997-6 (Version None)
Quarter: 2004Q3

REPORT INFORMATION
  Report Type: 
  Country: None (occurrence: None)
  Receive Date: 20040805
  Receipt Date: 20040712
  Transmission Date: 20050211
  Serious: Yes (Death)
  Sender: FDA-Public Use
  Company Number: 20040700339

PATIENT
  Sex: Male

DRUGS (1)
  1. PHENERGAN [Suspect]
     Dates: start: 20040601, end: 20040601

REACTIONS (3)
  - DEATH NEONATAL [None]
  - DRUG EXPOSURE DURING PREGNANCY [None]
  - PREMATURE BABY [None]
